FAERS Safety Report 9842471 (Version 2)
Quarter: 2014Q1

REPORT INFORMATION
  Report Type: Spontaneous
  Country: US (occurrence: US)
  Receive Date: 20140124
  Receipt Date: 20140124
  Transmission Date: 20141002
  Serious: No
  Sender: FDA-Public Use
  Company Number: US-GILEAD-2011-0039939

PATIENT
  Sex: Male

DRUGS (7)
  1. RANEXA [Suspect]
     Indication: ANGINA PECTORIS
     Dates: start: 20110517, end: 20110602
  2. FESOX [Concomitant]
  3. METOPROLOL [Concomitant]
  4. ASPIRIN [Concomitant]
  5. LANTUS [Concomitant]
  6. SIMVASTATIN [Concomitant]
  7. LOSARTAN [Concomitant]

REACTIONS (2)
  - Abnormal dreams [Recovered/Resolved]
  - Hallucination [Recovered/Resolved]
